FAERS Safety Report 8419822-5 (Version None)
Quarter: 2012Q2

REPORT INFORMATION
  Report Type: 
  Country: None (occurrence: None)
  Receive Date: 20120607
  Receipt Date: 20120601
  Transmission Date: 20120825
  Serious: Yes (Other)
  Sender: FDA-Public Use
  Company Number: PHEH2012US011286

PATIENT
  Sex: Female
  Weight: 81.633 kg

DRUGS (7)
  1. DEPAKOTE [Concomitant]
     Dosage: 500 MG, DAILY
     Route: 048
  2. PROVIGIL [Concomitant]
     Indication: FATIGUE
     Dosage: 2 DF, QD
     Route: 048
  3. PHENERGAN [Concomitant]
     Route: 048
  4. GILENYA [Suspect]
     Indication: MULTIPLE SCLEROSIS
     Dosage: UNK UKN, QD
     Route: 048
     Dates: start: 20120508
  5. LUNESTA [Concomitant]
     Route: 048
  6. MIRAPEX [Concomitant]
     Dosage: UNK UKN, UNK
     Route: 048
  7. ZOVIRAX [Concomitant]
     Route: 048

REACTIONS (10)
  - PRESYNCOPE [None]
  - NEUTROPHIL COUNT INCREASED [None]
  - HAEMATOCRIT DECREASED [None]
  - WHITE BLOOD CELL COUNT DECREASED [None]
  - LYMPHOCYTE COUNT DECREASED [None]
  - DIZZINESS [None]
  - HYPOTENSION [None]
  - HAEMOGLOBIN DECREASED [None]
  - HERPES ZOSTER [None]
  - RED BLOOD CELL COUNT DECREASED [None]
